FAERS Safety Report 23677131 (Version 6)
Quarter: 2024Q2

REPORT INFORMATION
  Report Type: Spontaneous
  Country: US (occurrence: US)
  Receive Date: 20240327
  Receipt Date: 20240620
  Transmission Date: 20240716
  Serious: No
  Sender: FDA-Public Use
  Company Number: US-PFIZER INC-202400068873

PATIENT
  Age: 14 Year
  Sex: Female

DRUGS (2)
  1. GENOTROPIN [Suspect]
     Active Substance: SOMATROPIN
     Indication: Growth hormone deficiency
     Dosage: 1.6 MG, 1X/DAY
     Dates: start: 202307
  2. GENOTROPIN [Suspect]
     Active Substance: SOMATROPIN
     Dosage: 1.4 MG, DAILY

REACTIONS (4)
  - Poor quality device used [Unknown]
  - Device mechanical issue [Unknown]
  - Device malfunction [Unknown]
  - Device leakage [Unknown]

NARRATIVE: CASE EVENT DATE: 20240201
